FAERS Safety Report 5584150-2 (Version None)
Quarter: 2008Q1

REPORT INFORMATION
  Report Type: 
  Country: None (occurrence: None)
  Receive Date: 20080108
  Receipt Date: 20071227
  Transmission Date: 20080703
  Serious: Yes (Hospitalization)
  Sender: FDA-Public Use
  Company Number: US-BAYER-200810088GPV

PATIENT
  Age: 88 Year
  Sex: Female

DRUGS (6)
  1. DACARBAZINE [Suspect]
     Indication: MALIGNANT MELANOMA
     Route: 042
     Dates: start: 20071025, end: 20071025
  2. DACARBAZINE [Suspect]
     Route: 042
     Dates: start: 20071115, end: 20071115
  3. IPILIMUMAB OR PLACEBO [Suspect]
     Indication: MALIGNANT MELANOMA
     Route: 042
     Dates: start: 20071115, end: 20071115
  4. IPILIMUMAB OR PLACEBO [Suspect]
     Route: 042
     Dates: start: 20071025, end: 20071025
  5. OXAZEPAM [Concomitant]
     Indication: DRUG USE FOR UNKNOWN INDICATION
     Route: 065
     Dates: start: 19990817
  6. ONDANSETRON [Concomitant]
     Indication: DRUG USE FOR UNKNOWN INDICATION
     Route: 065
     Dates: start: 20071025, end: 20071115

REACTIONS (1)
  - DYSPNOEA [None]
